FAERS Safety Report 8964640 (Version 1)
Quarter: 2012Q4

REPORT INFORMATION
  Report Type: 
  Country: US (occurrence: US)
  Receive Date: 20121213
  Receipt Date: 20121213
  Transmission Date: 20130627
  Serious: Yes (Other)
  Sender: FDA-Public Use
  Company Number: US-PFIZER INC-2012312943

PATIENT
  Sex: Female

DRUGS (1)
  1. CELEBREX [Suspect]
     Indication: SPINAL COLUMN STENOSIS
     Dosage: UNK

REACTIONS (2)
  - Gastric haemorrhage [Unknown]
  - Off label use [Unknown]
